FAERS Safety Report 5486012-8 (Version None)
Quarter: 2007Q4

REPORT INFORMATION
  Report Type: 
  Country: None (occurrence: None)
  Receive Date: 20071012
  Receipt Date: 20071003
  Transmission Date: 20080405
  Serious: Yes (Other)
  Sender: FDA-Public Use
  Company Number: TCI2007A05353

PATIENT
  Age: 67 Year
  Sex: Female

DRUGS (1)
  1. ACTOS [Suspect]
     Indication: DIABETES MELLITUS
     Dosage: 15 MG (15 MG, 1 D), PER ORAL
     Route: 048
     Dates: start: 20070401, end: 20070701

REACTIONS (3)
  - ERYTHROPENIA [None]
  - LEUKOPENIA [None]
  - THROMBOCYTOPENIA [None]
